FAERS Safety Report 7861124-X (Version None)
Quarter: 2011Q4

REPORT INFORMATION
  Report Type: 
  Country: None (occurrence: None)
  Receive Date: 20111027
  Receipt Date: 20111018
  Transmission Date: 20120403
  Serious: Yes (Other)
  Sender: FDA-Public Use
  Company Number: US-ASTRAZENECA-2010SE46878

PATIENT
  Age: 56 Year
  Sex: Female

DRUGS (9)
  1. ARIMIDEX [Suspect]
     Indication: BREAST CANCER
     Route: 048
  2. SEROQUEL [Suspect]
     Indication: BIPOLAR DISORDER
     Route: 048
     Dates: start: 19980101
  3. CLONAZEPAM [Concomitant]
  4. SEROQUEL [Suspect]
     Route: 048
     Dates: start: 20051202
  5. KLONOPIN [Concomitant]
     Dosage: 61.5 DAILY
     Route: 048
  6. SEROQUEL [Suspect]
     Route: 048
  7. SEROQUEL [Suspect]
     Route: 048
     Dates: start: 20000101
  8. LAMICTAL [Concomitant]
     Dosage: 400 DAILY
     Route: 048
  9. WELLBUTRIN [Concomitant]
     Dosage: 300 DAILY
     Route: 048

REACTIONS (7)
  - FALL [None]
  - BIPOLAR DISORDER [None]
  - BREAST CANCER [None]
  - INCORRECT DOSE ADMINISTERED [None]
  - STRESS [None]
  - TENDONITIS [None]
  - WRONG TECHNIQUE IN DRUG USAGE PROCESS [None]
